FAERS Safety Report 9865231 (Version 1)
Quarter: 2014Q1

REPORT INFORMATION
  Report Type: Spontaneous
  Country: US (occurrence: US)
  Receive Date: 20140203
  Receipt Date: 20140203
  Transmission Date: 20141002
  Serious: No
  Sender: FDA-Public Use
  Company Number: US-ALLERGAN-1300332US

PATIENT
  Age: 42 Year
  Sex: Male

DRUGS (2)
  1. RESTASIS [Suspect]
     Indication: DRY EYE
     Dosage: UNK
     Route: 047
     Dates: start: 201211, end: 20130107
  2. HERBAL MEDICATION [Concomitant]
     Indication: PRODUCT USED FOR UNKNOWN INDICATION

REACTIONS (3)
  - Inappropriate schedule of drug administration [Unknown]
  - Drug ineffective [Unknown]
  - Foreign body sensation in eyes [Unknown]
